FAERS Safety Report 8764569 (Version 2)
Quarter: 2018Q1

REPORT INFORMATION
  Report Type: Spontaneous
  Country: US (occurrence: US)
  Receive Date: 20120831
  Receipt Date: 20180216
  Transmission Date: 20180509
  Serious: Yes (Death, Hospitalization, Other)
  Sender: FDA-Public Use
  Company Number: US-ASTRAZENECA-2011SE72028

PATIENT
  Age: 28597 Day
  Sex: Male
  Weight: 58.1 kg

DRUGS (23)
  1. OMEPRAZOLE. [Suspect]
     Active Substance: OMEPRAZOLE
     Route: 048
  2. XALATAN [Concomitant]
     Active Substance: LATANOPROST
     Indication: EYE DISORDER
     Route: 047
  3. SYMBICORT [Suspect]
     Active Substance: BUDESONIDE\FORMOTEROL FUMARATE DIHYDRATE
     Indication: ASTHMA
     Dosage: 160/4.5, 2 PUFFS TWICE DAILY
     Route: 055
  4. CARBO-LEVO [Concomitant]
  5. SYMBICORT [Suspect]
     Active Substance: BUDESONIDE\FORMOTEROL FUMARATE DIHYDRATE
     Indication: LUNG NEOPLASM MALIGNANT
     Dosage: 160/4.5, 2 PUFFS TWICE DAILY
     Route: 055
  6. IPROTROPRIUM/ALBUTEROL [Concomitant]
     Dosage: 053 FOUR TIMES A DAY OR EVERY FOUR HOURS AS NEEDED
  7. PRAVASTATIN. [Concomitant]
     Active Substance: PRAVASTATIN
  8. SYMBICORT [Suspect]
     Active Substance: BUDESONIDE\FORMOTEROL FUMARATE DIHYDRATE
     Indication: CHRONIC OBSTRUCTIVE PULMONARY DISEASE
     Dosage: 160/4.5, 2 PUFFS TWICE DAILY
     Route: 055
  9. ASPARIN [Concomitant]
  10. OXYGEN. [Concomitant]
     Active Substance: OXYGEN
     Dosage: 03 VIA CANN, CONTINUOUSLY
  11. SYMBICORT [Suspect]
     Active Substance: BUDESONIDE\FORMOTEROL FUMARATE DIHYDRATE
     Indication: ASTHMA
     Dosage: 160/4.5 MCG, 2 INHALATIONS TWICE DAILY
     Route: 055
  12. SYMBICORT [Suspect]
     Active Substance: BUDESONIDE\FORMOTEROL FUMARATE DIHYDRATE
     Indication: EMPHYSEMA
     Dosage: 160/4.5 MCG, 2 INHALATIONS TWICE DAILY
     Route: 055
  13. SYMBICORT [Suspect]
     Active Substance: BUDESONIDE\FORMOTEROL FUMARATE DIHYDRATE
     Indication: LUNG NEOPLASM MALIGNANT
     Dosage: 160/4.5 MCG, 2 INHALATIONS TWICE DAILY
     Route: 055
  14. HYDROXYZINE HYDROCHLORIDE. [Concomitant]
     Active Substance: HYDROXYZINE HYDROCHLORIDE
  15. PROVENTIL HFA [Concomitant]
     Active Substance: ALBUTEROL SULFATE
     Dosage: 1 TO 2 PUFFS EVERY 4 HOURS AS NEEDED.
  16. JAYLN [Concomitant]
     Active Substance: DUTASTERIDE\TAMSULOSIN
     Dosage: 0504, DAILY
  17. DOVAN [Concomitant]
     Active Substance: METAMIZOLE SODIUM
     Indication: BLOOD PRESSURE ABNORMAL
  18. CARVEDILOL. [Concomitant]
     Active Substance: CARVEDILOL
  19. SYMBICORT [Suspect]
     Active Substance: BUDESONIDE\FORMOTEROL FUMARATE DIHYDRATE
     Indication: CHRONIC OBSTRUCTIVE PULMONARY DISEASE
     Dosage: 160/4.5 MCG, 2 INHALATIONS TWICE DAILY
     Route: 055
  20. SYMBICORT [Suspect]
     Active Substance: BUDESONIDE\FORMOTEROL FUMARATE DIHYDRATE
     Indication: EMPHYSEMA
     Dosage: 160/4.5, 2 PUFFS TWICE DAILY
     Route: 055
  21. COLACE [Concomitant]
     Active Substance: DOCUSATE SODIUM
  22. XANAX [Concomitant]
     Active Substance: ALPRAZOLAM
     Dosage: 0.25, TWO TIMES A DAY
  23. PREDNISONE. [Concomitant]
     Active Substance: PREDNISONE

REACTIONS (8)
  - Drug dose omission [Unknown]
  - Weight decreased [Unknown]
  - Lung neoplasm malignant [Fatal]
  - Cardiac disorder [Unknown]
  - Lung disorder [Unknown]
  - Dyspnoea [Unknown]
  - Lung disorder [Fatal]
  - Pneumonia [Fatal]

NARRATIVE: CASE EVENT DATE: 20180110
